FAERS Safety Report 5699254-3 (Version None)
Quarter: 2008Q2

REPORT INFORMATION
  Report Type: 
  Country: None (occurrence: None)
  Receive Date: 20080407
  Receipt Date: 20080407
  Transmission Date: 20081010
  Serious: Yes (Hospitalization)
  Sender: FDA-Public Use
  Company Number: None

PATIENT
  Age: 71 Year
  Sex: Female
  Weight: 58 kg

DRUGS (6)
  1. TRIAMTERENE W/ HYDROCHLOROTHIAZIDE [Suspect]
     Indication: HYPERTENSION
     Dosage: 1 TABLET DAILY PO
     Route: 048
     Dates: start: 20001026, end: 20080314
  2. ASPIRIN [Concomitant]
  3. LIPITOR [Concomitant]
  4. PREMARIN [Concomitant]
  5. LOSARTAN POTASSIUM [Concomitant]
  6. OMEPRAZOLE [Concomitant]

REACTIONS (12)
  - ASTHENIA [None]
  - BLOOD SODIUM DECREASED [None]
  - DIARRHOEA [None]
  - DIZZINESS [None]
  - DRY MOUTH [None]
  - FEELING ABNORMAL [None]
  - GASTROENTERITIS VIRAL [None]
  - HYPERSOMNIA [None]
  - NAUSEA [None]
  - ORAL INTAKE REDUCED [None]
  - UPPER RESPIRATORY TRACT INFECTION [None]
  - URINE OUTPUT DECREASED [None]
